FAERS Safety Report 17241413 (Version 1)
Quarter: 2020Q1

REPORT INFORMATION
  Report Type: Spontaneous
  Country: US (occurrence: US)
  Receive Date: 20200106
  Receipt Date: 20200106
  Transmission Date: 20200409
  Serious: No
  Sender: FDA-Public Use
  Company Number: None

PATIENT
  Age: 62 Year
  Sex: Male

DRUGS (1)
  1. LOVENOX [Suspect]
     Active Substance: ENOXAPARIN SODIUM
     Route: 058
     Dates: start: 202001

REACTIONS (4)
  - Syringe issue [None]
  - Circumstance or information capable of leading to medication error [None]
  - Product prescribing issue [None]
  - Product preparation error [None]

NARRATIVE: CASE EVENT DATE: 20200106
